FAERS Safety Report 10079096 (Version 1)
Quarter: 2014Q2

REPORT INFORMATION
  Report Type: Spontaneous
  Country: US (occurrence: None)
  Receive Date: 20140411
  Receipt Date: 20140411
  Transmission Date: 20141212
  Serious: Yes (Hospitalization, Other)
  Sender: FDA-Public Use
  Company Number: None

PATIENT
  Sex: Female
  Weight: 90.72 kg

DRUGS (11)
  1. RECLAST INFUSION [Suspect]
  2. HCTZ [Concomitant]
  3. OMEPRAZOLE [Concomitant]
  4. BISOPROLOL [Concomitant]
  5. MELOXICAN [Concomitant]
  6. BABY ASPIRIN [Concomitant]
  7. OXYBUTYNIN [Concomitant]
  8. CALCIUM [Concomitant]
  9. D3-1000 [Concomitant]
  10. 1 A DAY MULTIVITAMIN [Concomitant]
  11. AMLODIPINE [Concomitant]

REACTIONS (1)
  - VIIth nerve paralysis [None]
